FAERS Safety Report 11104711 (Version 2)
Quarter: 2015Q3

REPORT INFORMATION
  Report Type: Spontaneous
  Country: FO (occurrence: DK)
  Receive Date: 20150511
  Receipt Date: 20150706
  Transmission Date: 20151125
  Serious: Yes (Death, Life-Threatening)
  Sender: FDA-Public Use
  Company Number: FO-ACTAVIS-2015-09271

PATIENT
  Age: 81 Year
  Sex: Male
  Weight: 84 kg

DRUGS (7)
  1. CLOPIDOGREL [Suspect]
     Active Substance: CLOPIDOGREL BISULFATE
     Indication: ACUTE MYOCARDIAL INFARCTION
     Dosage: 75 MG, DAILY (DOSE: 300 MG AS A SINGLE DOSE, THEN 75 MG 1 TIME A DAY)
     Route: 048
     Dates: start: 20150421, end: 20150422
  2. HJERDYL [Suspect]
     Active Substance: ASPIRIN
     Indication: ACUTE MYOCARDIAL INFARCTION
     Dosage: 75 MG, DAILY;DOSE: 300 MG SINGLE DOSE, THEN 75 MG 1 TIME A DAY.
     Route: 048
     Dates: start: 20150421, end: 20150422
  3. AMLODIPIN ACTAVIS                  /00972402/ [Concomitant]
     Indication: HYPERTENSION
     Dosage: 5 MG, DAILY
     Route: 065
     Dates: start: 20100107, end: 20150421
  4. RAPILYSIN /01333701/ [Suspect]
     Active Substance: RETEPLASE
     Indication: ACUTE MYOCARDIAL INFARCTION
     Dosage: 10 IU;DOSE: 10 IU IV BOLUS 2 TIMES WITH 30-MINUTE INCREMENT;
     Route: 042
     Dates: start: 20150421
  5. FRAGMIN [Suspect]
     Active Substance: DALTEPARIN SODIUM
     Indication: ACUTE MYOCARDIAL INFARCTION
     Dosage: UNK;PRESCRIBED DOSE: 120 IU / KG X 2, BUT UNCERTAIN WHAT IS ADMINISRERET. STRENGTH: 10000 IU / ML
     Route: 058
     Dates: start: 20150421, end: 20150422
  6. ELTROXIN [Concomitant]
     Active Substance: LEVOTHYROXINE
     Indication: HYPOTHYROIDISM
     Dosage: 100 ?G, DAILY
     Route: 065
     Dates: start: 20120919, end: 20150421
  7. CORODIL                            /00574902/ [Concomitant]
     Active Substance: DIPYRIDAMOLE
     Indication: HYPERTENSION
     Dosage: 5 MG, DAILY
     Route: 065
     Dates: start: 20120927, end: 20150421

REACTIONS (5)
  - Cerebral haemorrhage [Fatal]
  - Cardiac arrest [Fatal]
  - Brain herniation [Not Recovered/Not Resolved]
  - Brain oedema [Not Recovered/Not Resolved]
  - Intracranial pressure increased [Fatal]

NARRATIVE: CASE EVENT DATE: 20150422
